FAERS Safety Report 8282409-1 (Version None)
Quarter: 2012Q2

REPORT INFORMATION
  Report Type: 
  Country: None (occurrence: None)
  Receive Date: 20120413
  Receipt Date: 20120409
  Transmission Date: 20120825
  Serious: Yes (Other)
  Sender: FDA-Public Use
  Company Number: US-B.I. PHARMACEUTICALS,INC./RIDGEFIELD-2012-BP-02790BP

PATIENT
  Sex: Female

DRUGS (13)
  1. LOSARTAN POTASSIUM AND HYDROCHLOROTHIAZIDE [Concomitant]
  2. EFFEXOR XR [Concomitant]
  3. PLAVIX [Concomitant]
     Indication: ANTICOAGULANT THERAPY
  4. CELEBREX [Concomitant]
  5. COMBIVENT [Suspect]
     Indication: CHRONIC OBSTRUCTIVE PULMONARY DISEASE
  6. EFFEXOR XR [Concomitant]
  7. CLONAZEPAM [Concomitant]
  8. ROPINIROLE [Concomitant]
  9. NASONEX SPR [Concomitant]
  10. SIMVASTATIN [Concomitant]
  11. ACIPHEX [Concomitant]
  12. NASACORT [Concomitant]
  13. FLOVENT HFA [Concomitant]

REACTIONS (1)
  - CEREBROVASCULAR ACCIDENT [None]
